FAERS Safety Report 23981488 (Version 5)
Quarter: 2024Q3

REPORT INFORMATION
  Report Type: Spontaneous
  Country: JP (occurrence: JP)
  Receive Date: 20240617
  Receipt Date: 20240905
  Transmission Date: 20241017
  Serious: Yes (Other)
  Sender: PFIZER
  Company Number: JP-PFIZER INC-PV202400077248

PATIENT
  Age: 76 Year
  Sex: Female
  Weight: 30.3 kg

DRUGS (14)
  1. ELREXFIO [Suspect]
     Active Substance: ELRANATAMAB-BCMM
     Indication: Plasma cell myeloma
     Dosage: 12 MG, 1X/DAY
     Route: 058
     Dates: start: 20240524
  2. ELREXFIO [Suspect]
     Active Substance: ELRANATAMAB-BCMM
     Dosage: 32 MG, 1X/DAY
     Route: 058
     Dates: start: 20240527
  3. ELREXFIO [Suspect]
     Active Substance: ELRANATAMAB-BCMM
     Dosage: 76 MG, 1X/DAY
     Route: 058
     Dates: start: 20240531
  4. SULFAMETHOXAZOLE\TRIMETHOPRIM [Concomitant]
     Active Substance: SULFAMETHOXAZOLE\TRIMETHOPRIM
     Dosage: 0.5 DF, 1X/DAY
  5. ZOVIRAX [Concomitant]
     Active Substance: ACYCLOVIR
     Dosage: 1 DF, 1X/DAY
  6. LEVOTHYROXINE [Concomitant]
     Active Substance: LEVOTHYROXINE\LEVOTHYROXINE SODIUM
     Dosage: 1 DF, 1X/DAY
  7. EDOXABAN TOSYLATE [Concomitant]
     Active Substance: EDOXABAN TOSYLATE
     Dosage: 1 DF, 1X/DAY
  8. VONOPRAZAN FUMARATE [Concomitant]
     Active Substance: VONOPRAZAN FUMARATE
     Dosage: 1 DF, 1X/DAY
  9. FEXOFENADINE HYDROCHLORIDE [Concomitant]
     Active Substance: FEXOFENADINE HYDROCHLORIDE
     Dosage: 1 DF, 2X/DAY
  10. LAGNOS NF [Concomitant]
     Dosage: 1 DF, 2X/DAY
  11. SHIMBUTO [ACONITUM SPP. PROCESSED ROOT;ATRACTYLODES LANCEA RHIZOME;PAE [Concomitant]
     Dosage: 1.5 G, 3X/DAY
  12. SHIMBUTO [ACONITUM SPP. PROCESSED ROOT;ATRACTYLODES LANCEA RHIZOME;PAE [Concomitant]
     Dosage: 1.5 G, 2X/DAY
  13. NINJINTO [ATRACTYLODES LANCEA RHIZOME;GLYCYRRHIZA SPP. ROOT;PANAX GINS [Concomitant]
     Dosage: 3 G, 2X/DAY
  14. HERBALS [Concomitant]
     Active Substance: HERBALS
     Dosage: 2.5 G, 1X/DAY

REACTIONS (4)
  - Cytokine release syndrome [Recovered/Resolved]
  - Pyrexia [Recovered/Resolved]
  - Blood pressure decreased [Recovered/Resolved]
  - Infection [Recovered/Resolved]

NARRATIVE: CASE EVENT DATE: 20240528
